FAERS Safety Report 4549044-X (Version None)
Quarter: 2004Q4

REPORT INFORMATION
  Report Type: 
  Country: None (occurrence: None)
  Receive Date: 20041227
  Receipt Date: 20040902
  Transmission Date: 20050328
  Serious: No
  Sender: FDA-Public Use
  Company Number: 04P-163-0270133-00

PATIENT
  Age: 48 Year
  Sex: Male
  Weight: 68.0396 kg

DRUGS (9)
  1. HUMIRA [Suspect]
     Indication: RHEUMATOID ARTHRITIS
     Dosage: 40 MG, 1 IN 2 WK, SUBCUTANEOUS
     Route: 058
     Dates: start: 20040810
  2. METHOTREXATE [Concomitant]
  3. NAPROXEN [Concomitant]
  4. BUPROPION HYDROCHLORIDE [Concomitant]
  5. PREDNISONE [Concomitant]
  6. TRAZODONE HCL [Concomitant]
  7. METHADONE HCL [Concomitant]
  8. AMITRIPTYLINE [Concomitant]
  9. CELECOXIB [Concomitant]

REACTIONS (5)
  - ABDOMINAL DISTENSION [None]
  - COUGH [None]
  - DRY MOUTH [None]
  - INCREASED APPETITE [None]
  - SINUSITIS [None]
